FAERS Safety Report 4431841-2 (Version None)
Quarter: 2004Q3

REPORT INFORMATION
  Report Type: 
  Country: None (occurrence: None)
  Receive Date: 20040819
  Receipt Date: 20040803
  Transmission Date: 20050211
  Serious: Yes (Hospitalization)
  Sender: FDA-Public Use
  Company Number: A0520824A

PATIENT
  Age: 45 Year
  Sex: Female

DRUGS (1)
  1. NICORETTE [Suspect]
     Indication: SMOKING CESSATION THERAPY
     Dosage: TRANSBUCCAL
     Route: 002
     Dates: start: 20010101

REACTIONS (7)
  - ALCOHOL USE [None]
  - ANAEMIA [None]
  - GRAND MAL CONVULSION [None]
  - HEART RATE IRREGULAR [None]
  - PULMONARY OEDEMA [None]
  - RESPIRATORY DISTRESS [None]
  - SIMPLE PARTIAL SEIZURES [None]
